FAERS Safety Report 10264801 (Version 2)
Quarter: 2014Q3

REPORT INFORMATION
  Report Type: Spontaneous
  Country: IT (occurrence: IT)
  Receive Date: 20140627
  Receipt Date: 20140715
  Transmission Date: 20150326
  Serious: Yes (Other)
  Sender: FDA-Public Use
  Company Number: IT-009507513-1406ITA011169

PATIENT
  Age: 80 Year
  Sex: Female

DRUGS (3)
  1. ALLOPURINOL. [Suspect]
     Active Substance: ALLOPURINOL
     Indication: INTENTIONAL SELF-INJURY
     Dosage: 7 POSOLOGICAL UNIT TOTAL DAILY DOSE, FREQUENCY TOTAL
     Route: 048
     Dates: start: 20140307, end: 20140307
  2. AERIUS [Suspect]
     Active Substance: DESLORATADINE
     Indication: INTENTIONAL SELF-INJURY
     Dosage: 10 POSOLOGICAL UNIT TOTAL DAILY DOSE, FREQUENCY TOTAL
     Route: 048
     Dates: start: 20140307, end: 20140307
  3. DELTACORTENE [Suspect]
     Active Substance: PREDNISONE
     Indication: INTENTIONAL SELF-INJURY
     Dosage: 5 POSOLOGICAL UNIT TOTAL DAILY DOSE, FREQUENCY TOTAL
     Route: 048
     Dates: start: 20140307, end: 20140307

REACTIONS (3)
  - Abdominal pain upper [Recovering/Resolving]
  - Agitation [Recovering/Resolving]
  - Intentional self-injury [Recovering/Resolving]

NARRATIVE: CASE EVENT DATE: 20140307
